FAERS Safety Report 10587487 (Version 1)
Quarter: 2014Q4

REPORT INFORMATION
  Report Type: Spontaneous
  Country: IT (occurrence: IT)
  Receive Date: 20141117
  Receipt Date: 20141117
  Transmission Date: 20150529
  Serious: Yes (Hospitalization, Other)
  Sender: FDA-Public Use
  Company Number: IT-SA-2014SA155819

PATIENT
  Age: 88 Year
  Sex: Female

DRUGS (7)
  1. CORLENTOR [Concomitant]
     Active Substance: IVABRADINE HYDROCHLORIDE
  2. CIPRALEX [Concomitant]
     Active Substance: ESCITALOPRAM OXALATE
  3. LASIX [Suspect]
     Active Substance: FUROSEMIDE
     Dosage: 2 DOSAGE UNIT, DAILY
     Route: 048
     Dates: start: 20141021, end: 20141109
  4. LOSARTAN POTASSIUM. [Suspect]
     Active Substance: LOSARTAN POTASSIUM
     Route: 048
     Dates: start: 20120101, end: 20141109
  5. ALDACTONE [Suspect]
     Active Substance: SPIRONOLACTONE
     Route: 048
     Dates: start: 20141021, end: 20141109
  6. OMEPRAZOLE. [Concomitant]
     Active Substance: OMEPRAZOLE
  7. CARDIOASPIRIN [Concomitant]
     Active Substance: ASPIRIN

REACTIONS (1)
  - Syncope [Recovering/Resolving]

NARRATIVE: CASE EVENT DATE: 20141109
